FAERS Safety Report 17025525 (Version 1)
Quarter: 2019Q4

REPORT INFORMATION
  Report Type: Spontaneous
  Country: US (occurrence: US)
  Receive Date: 20191113
  Receipt Date: 20191113
  Transmission Date: 20200122
  Serious: No
  Sender: FDA-Public Use
  Company Number: US-ENDO PHARMACEUTICALS INC-2019-107305

PATIENT
  Age: 14 Year
  Sex: Male
  Weight: 66.8 kg

DRUGS (2)
  1. VANTAS [Suspect]
     Active Substance: HISTRELIN ACETATE
     Indication: GENDER DYSPHORIA
     Dosage: UNK UNKNOWN, UNKNOWN
     Route: 065
     Dates: start: 20180306
  2. CASODEX [Concomitant]
     Active Substance: BICALUTAMIDE
     Indication: DELAYED PUBERTY
     Dosage: 50 MG, UNKNOWN
     Route: 048

REACTIONS (3)
  - Procedural complication [Unknown]
  - Off label use [Unknown]
  - Incorrect product administration duration [Unknown]

NARRATIVE: CASE EVENT DATE: 20180306
